FAERS Safety Report 22537640 (Version 2)
Quarter: 2023Q2

REPORT INFORMATION
  Report Type: Spontaneous
  Country: RU (occurrence: None)
  Receive Date: 20230608
  Receipt Date: 20230614
  Transmission Date: 20230722
  Serious: Yes (Death, Hospitalization)
  Sender: FDA-Public Use
  Company Number: 2023A132943

PATIENT
  Age: 62 Year
  Sex: Female

DRUGS (8)
  1. DAPAGLIFLOZIN [Suspect]
     Active Substance: DAPAGLIFLOZIN
     Indication: Cardiac failure
     Route: 048
  2. FUROSEMIDE [Concomitant]
     Active Substance: FUROSEMIDE
  3. TORSEMIDE [Concomitant]
     Active Substance: TORSEMIDE
  4. EPLERENONE [Concomitant]
     Active Substance: EPLERENONE
  5. ACETAZOLAMIDE [Concomitant]
     Active Substance: ACETAZOLAMIDE
  6. AMIODARONE [Concomitant]
     Active Substance: AMIODARONE
  7. RIVAROXABAN [Concomitant]
     Active Substance: RIVAROXABAN
  8. TAFAMIDIS [Concomitant]
     Active Substance: TAFAMIDIS

REACTIONS (6)
  - Cachexia [Fatal]
  - Ejection fraction decreased [Fatal]
  - Defect conduction intraventricular [Fatal]
  - Atrioventricular block [Fatal]
  - Cardiac failure congestive [Unknown]
  - Drug ineffective [Unknown]
